FAERS Safety Report 5903905-5 (Version None)
Quarter: 2008Q3

REPORT INFORMATION
  Report Type: 
  Country: None (occurrence: None)
  Receive Date: 20080919
  Receipt Date: 20080611
  Transmission Date: 20090109
  Serious: No
  Sender: FDA-Public Use
  Company Number: US-WYE-H04516308

PATIENT
  Age: 50 Year
  Sex: Female
  Weight: 65.83 kg

DRUGS (2)
  1. PRISTIQ [Suspect]
     Indication: ANXIETY
     Dosage: 50 MG 1X PER 1 DAY, ORAL
     Route: 048
     Dates: start: 20080508, end: 20080609
  2. ATENOLOL [Concomitant]

REACTIONS (2)
  - HEADACHE [None]
  - VISION BLURRED [None]
